FAERS Safety Report 9684479 (Version 1)
Quarter: 2013Q4

REPORT INFORMATION
  Report Type: Spontaneous
  Country: CH (occurrence: CH)
  Receive Date: 20131112
  Receipt Date: 20131112
  Transmission Date: 20140711
  Serious: Yes (Hospitalization)
  Sender: FDA-Public Use
  Company Number: PHHY2013CH126942

PATIENT
  Age: 82 Year
  Sex: Female

DRUGS (9)
  1. METO ZEROK [Suspect]
     Dosage: 100 MG, QD
     Route: 048
  2. RAPIDOCAIN [Interacting]
     Route: 053
     Dates: start: 20130429, end: 20130429
  3. ADALAT [Interacting]
     Dosage: 20 MG, PRN
     Route: 048
  4. MARCOUMAR [Concomitant]
     Indication: ATRIAL FIBRILLATION
     Dosage: 3 MG, PRN
     Route: 048
  5. MARCOUMAR [Concomitant]
     Indication: ATRIAL FLUTTER
  6. TRIATEC [Concomitant]
     Dosage: 10 MG, QD
     Route: 048
  7. CO VALTAN [Concomitant]
     Dosage: 1 DF, QD
     Route: 048
  8. SIMVASTATIN [Concomitant]
     Dosage: 40 MG, QD
     Route: 048
  9. MINITRAN [Concomitant]
     Dosage: 5 MG, UNK

REACTIONS (6)
  - Atrioventricular block first degree [Recovered/Resolved]
  - Sinus bradycardia [Recovered/Resolved]
  - Presyncope [Recovered/Resolved]
  - Fatigue [Recovered/Resolved]
  - Dizziness [Recovered/Resolved]
  - Drug interaction [Recovered/Resolved]
